FAERS Safety Report 7337936-8 (Version None)
Quarter: 2011Q1

REPORT INFORMATION
  Report Type: 
  Country: None (occurrence: None)
  Receive Date: 20110308
  Receipt Date: 20110302
  Transmission Date: 20110831
  Serious: Yes (Death, Hospitalization)
  Sender: FDA-Public Use
  Company Number: CA-ROCHE-763297

PATIENT
  Sex: Male

DRUGS (10)
  1. CIPROFLOXACIN [Concomitant]
  2. ALLOPURINOL [Concomitant]
  3. PEGINTERFERON ALFA-2A [Suspect]
     Indication: HEPATITIS C
     Route: 058
     Dates: start: 20090818
  4. CIPRALEX [Concomitant]
  5. RIBAVIRIN [Suspect]
     Indication: HEPATITIS C
     Route: 065
     Dates: start: 20090818
  6. PREDNISONE [Concomitant]
  7. PANTOPRAZOLE SODIUM [Concomitant]
  8. CYCLOSPORINE [Concomitant]
  9. ZOPICLONE [Concomitant]
     Dosage: NAME: MYLAN-ZOPICLONE
  10. APO-NADOL [Concomitant]

REACTIONS (1)
  - DEATH [None]
